FAERS Safety Report 8904363 (Version 2)
Quarter: 2012Q4

REPORT INFORMATION
  Report Type: Report from Study
  Country: BE (occurrence: FR)
  Receive Date: 20121112
  Receipt Date: 20121205
  Transmission Date: 20130627
  Serious: Yes (Death, Other)
  Sender: FDA-Public Use
  Company Number: FR-MERCK-1210BEL010652

PATIENT
  Age: 69 Year
  Sex: Male
  Weight: 84.4 kg

DRUGS (5)
  1. CASPOFUNGIN ACETATE [Suspect]
     Indication: FEBRILE NEUTROPENIA
     Dosage: 70 mg, qd
     Route: 042
     Dates: start: 20121010, end: 20121102
  2. TAZOCILLINE [Concomitant]
     Indication: PYREXIA
     Dosage: 16 g, qd
     Route: 042
     Dates: start: 20120606, end: 20121019
  3. DAUNORUBICIN [Concomitant]
     Indication: ACUTE MYELOID LEUKAEMIA
     Dosage: 60 mg/m2, qd
     Route: 042
     Dates: start: 20121002, end: 20121019
  4. ARACYTINE [Concomitant]
     Indication: ACUTE MYELOID LEUKAEMIA
     Dosage: 100 mg/m2, qd
     Route: 042
     Dates: start: 20121002, end: 20121019
  5. VESANOID [Concomitant]
     Indication: ACUTE MYELOID LEUKAEMIA
     Dosage: UNK, qd
     Route: 042
     Dates: start: 20121002, end: 20121019

REACTIONS (2)
  - Acidosis [Fatal]
  - Renal failure acute [Fatal]
